FAERS Safety Report 8787266 (Version 1)
Quarter: 2012Q4

REPORT INFORMATION
  Report Type: 
  Country: BR (occurrence: BR)
  Receive Date: 20120914
  Receipt Date: 20120914
  Transmission Date: 20130627
  Serious: Yes (Other)
  Sender: FDA-Public Use
  Company Number: BR-AMGEN-BRASP2012057607

PATIENT
  Age: 47 Year
  Sex: Female
  Weight: 97 kg

DRUGS (6)
  1. ENBREL [Suspect]
     Indication: RHEUMATOID ARTHRITIS
     Dosage: 50 mg, once weekly
     Route: 058
     Dates: start: 2011, end: 2011
  2. ENALAPRIL [Concomitant]
     Indication: HYPERTENSION
     Dosage: 10 mg, UNK
  3. SULFASALAZINE [Concomitant]
     Dosage: 2000 mg, UNK (4 tablets of the 500 mg)
     Route: 048
  4. ARAVA [Concomitant]
     Dosage: 20 mg, UNK
  5. CALCIUM [Concomitant]
     Indication: BONE DISORDER
     Dosage: UNK
  6. METICORTEN [Concomitant]
     Dosage: UNK

REACTIONS (1)
  - Lung neoplasm [Unknown]
